FAERS Safety Report 4610107-1 (Version None)
Quarter: 2005Q1

REPORT INFORMATION
  Report Type: 
  Country: None (occurrence: None)
  Receive Date: 20050316
  Receipt Date: 20040413
  Transmission Date: 20050727
  Serious: No
  Sender: FDA-Public Use
  Company Number: US-GLAXOSMITHKLINE-A0506937A

PATIENT
  Sex: Male

DRUGS (7)
  1. COMPAZINE [Suspect]
     Indication: VOMITING
     Dosage: 10MG FOUR TIMES PER DAY
     Route: 048
     Dates: start: 20040318, end: 20040326
  2. TENORMIN [Concomitant]
  3. PRINIVIL [Concomitant]
  4. DYAZIDE [Concomitant]
  5. PREVACID [Concomitant]
  6. METADATE CD [Concomitant]
  7. XANAX [Concomitant]

REACTIONS (1)
  - AKATHISIA [None]
